FAERS Safety Report 12693896 (Version 1)
Quarter: 2016Q3

REPORT INFORMATION
  Report Type: Spontaneous
  Country: US (occurrence: US)
  Receive Date: 20160829
  Receipt Date: 20160829
  Transmission Date: 20161109
  Serious: No
  Sender: FDA-Public Use
  Company Number: US-PFIZER INC-2016398974

PATIENT
  Sex: Male

DRUGS (1)
  1. ADVIL [Suspect]
     Active Substance: IBUPROFEN
     Indication: PAIN
     Dosage: 3 DF, SINGLE (THREE TABLETS AT ONE TIME)
     Dates: start: 20160821

REACTIONS (6)
  - Product odour abnormal [Unknown]
  - Dysgeusia [Unknown]
  - Product use issue [Unknown]
  - Product taste abnormal [Unknown]
  - Expired product administered [Unknown]
  - Poor quality drug administered [Unknown]

NARRATIVE: CASE EVENT DATE: 20160821
